FAERS Safety Report 15001858 (Version 1)
Quarter: 2018Q2

REPORT INFORMATION
  Report Type: Spontaneous
  Country: TW (occurrence: TW)
  Receive Date: 20180612
  Receipt Date: 20180612
  Transmission Date: 20180711
  Serious: Yes (Hospitalization, Other)
  Sender: FDA-Public Use
  Company Number: TW-MYLANLABS-2018M1041642

PATIENT
  Age: 51 Year
  Sex: Female

DRUGS (3)
  1. QUETIAPINE. [Suspect]
     Active Substance: QUETIAPINE
     Indication: MANIA
     Dosage: 400 MG, QD
     Route: 065
  2. VALPROIC ACID. [Suspect]
     Active Substance: VALPROIC ACID
     Indication: MANIA
     Dosage: 1000 MG, QD
  3. QUETIAPINE. [Suspect]
     Active Substance: QUETIAPINE
     Dosage: 200 MG, QD
     Route: 065

REACTIONS (10)
  - Asthenia [Unknown]
  - Decreased appetite [Unknown]
  - Leukocytosis [Unknown]
  - Urinary retention [Unknown]
  - Abdominal pain [Unknown]
  - Condition aggravated [Unknown]
  - Hypothyroidism [Unknown]
  - Ileus paralytic [Unknown]
  - Constipation [Unknown]
  - Abdominal distension [Unknown]
